FAERS Safety Report 7778459-1 (Version None)
Quarter: 2011Q3

REPORT INFORMATION
  Report Type: 
  Country: None (occurrence: None)
  Receive Date: 20110926
  Receipt Date: 20110914
  Transmission Date: 20111222
  Serious: Yes (Other)
  Sender: FDA-Public Use
  Company Number: FR-GLAXOSMITHKLINE-B0747201A

PATIENT
  Sex: Male

DRUGS (14)
  1. CEFTAZIDIME SODIUM [Suspect]
     Indication: STAPHYLOCOCCAL SEPSIS
     Route: 042
     Dates: start: 20110223
  2. ASPIRIN [Concomitant]
  3. HEPARIN [Concomitant]
  4. LASIX [Suspect]
     Indication: PRODUCT USED FOR UNKNOWN INDICATION
     Route: 065
     Dates: start: 20110224, end: 20110224
  5. ATORVASTATIN CALCIUM [Concomitant]
  6. TIENAM [Concomitant]
     Indication: INFECTION
     Dates: start: 20110207
  7. ALBUMIN (HUMAN) [Suspect]
     Indication: HYPOVOLAEMIA
     Route: 042
     Dates: start: 20110224, end: 20110224
  8. PIPERACILLIN [Concomitant]
     Indication: URINARY TRACT INFECTION PSEUDOMONAL
     Dates: start: 20110201
  9. PACKED RED CELLS [Suspect]
     Route: 042
     Dates: start: 20110224, end: 20110224
  10. NICARDIPINE HCL [Concomitant]
  11. NOVOSEVEN [Concomitant]
     Indication: EPISTAXIS
     Dates: start: 20110201
  12. AMIKACIN [Suspect]
     Indication: STAPHYLOCOCCAL SEPSIS
     Route: 042
     Dates: start: 20110223
  13. VANCOMYCIN [Suspect]
     Indication: STAPHYLOCOCCAL SEPSIS
     Route: 042
     Dates: start: 20110223
  14. OMEPRAZOLE [Concomitant]
     Dosage: 20MG PER DAY

REACTIONS (7)
  - DYSPNOEA [None]
  - TACHYCARDIA [None]
  - LIVEDO RETICULARIS [None]
  - CYANOSIS [None]
  - CHILLS [None]
  - PYREXIA [None]
  - HYPERTENSION [None]
